FAERS Safety Report 9427062 (Version 2)
Quarter: 2013Q3

REPORT INFORMATION
  Report Type: Report from Study
  Country: JP (occurrence: JP)
  Receive Date: 20130730
  Receipt Date: 20130906
  Transmission Date: 20140515
  Serious: No
  Sender: FDA-Public Use
  Company Number: JP-ELI_LILLY_AND_COMPANY-JP201307006220

PATIENT
  Age: 53 Year
  Sex: Female

DRUGS (2)
  1. GEMCITABINE HYDROCHLORIDE [Suspect]
     Indication: BREAST CANCER RECURRENT
     Dosage: 1250 MG/M2, UNK
     Route: 042
     Dates: start: 200602, end: 2006
  2. GEMCITABINE HYDROCHLORIDE [Suspect]
     Dosage: 1000 MG/M2, UNK
     Route: 042
     Dates: start: 2006

REACTIONS (3)
  - Loss of consciousness [Unknown]
  - Neutropenia [Unknown]
  - Hepatic function abnormal [Unknown]
